FAERS Safety Report 8227870-3 (Version None)
Quarter: 2012Q1

REPORT INFORMATION
  Report Type: 
  Country: None (occurrence: None)
  Receive Date: 20120322
  Receipt Date: 20120317
  Transmission Date: 20120608
  Serious: Yes (Hospitalization)
  Sender: FDA-Public Use
  Company Number: US-BAYER-2012-000487

PATIENT
  Age: 23 Year
  Sex: Female
  Weight: 72.562 kg

DRUGS (10)
  1. YASMIN [Suspect]
     Indication: PREMENSTRUAL SYNDROME
     Dosage: UNK
     Dates: start: 20030501, end: 20031001
  2. YASMIN [Suspect]
     Indication: DYSMENORRHOEA
  3. WELLBUTRIN SR [Concomitant]
     Indication: DEPRESSION
  4. YAZ [Suspect]
     Indication: PREMENSTRUAL SYNDROME
     Dosage: UNK
     Dates: start: 20030501, end: 20031001
  5. ZYRTEC-D 12 HOUR [Concomitant]
     Indication: HYPERSENSITIVITY
  6. YAZ [Suspect]
     Indication: DYSMENORRHOEA
  7. EFFEXOR [Concomitant]
  8. VICODIN [Concomitant]
     Dosage: UNK
     Route: 048
     Dates: start: 20030930
  9. IBUPROFEN [Concomitant]
     Dosage: UNK
     Route: 048
     Dates: start: 20030930
  10. ZOLOFT [Concomitant]
     Indication: DEPRESSION

REACTIONS (6)
  - PAIN [None]
  - INJURY [None]
  - DEEP VEIN THROMBOSIS [None]
  - MENTAL DISORDER [None]
  - PULMONARY EMBOLISM [None]
  - ANXIETY [None]
